FAERS Safety Report 25349204 (Version 2)
Quarter: 2025Q3

REPORT INFORMATION
  Report Type: Spontaneous
  Country: US (occurrence: US)
  Receive Date: 20250522
  Receipt Date: 20250726
  Transmission Date: 20251020
  Serious: No
  Sender: SANOFI AVENTIS
  Company Number: US-SA-2025SA145293

PATIENT
  Age: 33 Year
  Sex: Female

DRUGS (1)
  1. DUPIXENT [Suspect]
     Active Substance: DUPILUMAB
     Indication: Asthma
     Dosage: 300 MG, QOW
     Route: 058
     Dates: start: 202504

REACTIONS (8)
  - Chest discomfort [Recovered/Resolved]
  - Increased bronchial secretion [Recovered/Resolved]
  - Dairy intolerance [Recovered/Resolved]
  - Dyspnoea [Recovered/Resolved]
  - Arthralgia [Unknown]
  - Asthma [Unknown]
  - Dry eye [Recovered/Resolved]
  - Therapeutic response shortened [Unknown]

NARRATIVE: CASE EVENT DATE: 20250101
